FAERS Safety Report 9158698 (Version 1)
Quarter: 2013Q1

REPORT INFORMATION
  Report Type: Spontaneous
  Country: US (occurrence: US)
  Receive Date: 20130312
  Receipt Date: 20130312
  Transmission Date: 20140127
  Serious: Yes (Other)
  Sender: FDA-Public Use
  Company Number: US-TEVA-390209USA

PATIENT
  Age: 42 Year
  Sex: Female
  Weight: 36.32 kg

DRUGS (13)
  1. FENTORA [Suspect]
     Dosage: UNKNOWN DOSE TITRATED UP TO 800 MCG
     Route: 002
  2. CIPRO [Concomitant]
  3. PREDNISONE [Concomitant]
  4. CIMIZA [Concomitant]
  5. NEXIUM [Concomitant]
  6. KLONOPIN [Concomitant]
  7. HYDROXYZINE PAMOATE [Concomitant]
  8. BENADRYL [Concomitant]
     Indication: PREMEDICATION
     Route: 048
  9. MULTIVITAMIN [Concomitant]
  10. VITAMIN D [Concomitant]
     Dosage: HIGH DOSE
  11. POLYETHYLENE GLYCOL [Concomitant]
  12. TYLENOL [Concomitant]
  13. FOLIC ACID [Concomitant]

REACTIONS (7)
  - Staphylococcal infection [Unknown]
  - Chapped lips [Unknown]
  - Pruritus [Unknown]
  - Rash [Unknown]
  - Drug hypersensitivity [Unknown]
  - Pyrexia [Unknown]
  - Feeling abnormal [Unknown]
